FAERS Safety Report 14942593 (Version 2)
Quarter: 2019Q1

REPORT INFORMATION
  Report Type: Spontaneous
  Country: US (occurrence: US)
  Receive Date: 20180528
  Receipt Date: 20190122
  Transmission Date: 20190417
  Serious: Yes (Hospitalization, Other)
  Sender: FDA-Public Use
  Company Number: US-ASTRAZENECA-2018SE67411

PATIENT
  Age: 23921 Day
  Sex: Female
  Weight: 90.7 kg

DRUGS (6)
  1. HCTZ [Concomitant]
     Active Substance: HYDROCHLOROTHIAZIDE
     Indication: HYPERTENSION
     Dates: start: 201511
  2. FASLODEX [Suspect]
     Active Substance: FULVESTRANT
     Dosage: 500MG INJECTION ONCE PER MONTH
     Route: 030
  3. TAMOXIFEN [Suspect]
     Active Substance: TAMOXIFEN
     Route: 048
  4. COUMADIN [Concomitant]
     Active Substance: WARFARIN SODIUM
     Dates: start: 201711
  5. IBRANCE [Suspect]
     Active Substance: PALBOCICLIB
     Indication: CANCER HORMONAL THERAPY
     Route: 048
     Dates: start: 201709, end: 20190122
  6. LIPITOR [Concomitant]
     Active Substance: ATORVASTATIN CALCIUM
     Indication: BLOOD CHOLESTEROL INCREASED
     Dates: start: 201511

REACTIONS (5)
  - Throat tightness [Unknown]
  - Blood pressure increased [Unknown]
  - Oedema [Unknown]
  - Hot flush [Not Recovered/Not Resolved]
  - Cough [Unknown]

NARRATIVE: CASE EVENT DATE: 20180507
